FAERS Safety Report 23762590 (Version 1)
Quarter: 2024Q2

REPORT INFORMATION
  Report Type: Spontaneous
  Country: US (occurrence: US)
  Receive Date: 20240419
  Receipt Date: 20240419
  Transmission Date: 20240716
  Serious: No
  Sender: FDA-Public Use
  Company Number: US-PFIZER INC-202400089329

PATIENT

DRUGS (2)
  1. MEKTOVI [Suspect]
     Active Substance: BINIMETINIB
     Indication: Neoplasm
     Dosage: UNK
     Dates: start: 2023
  2. BRAFTOVI [Suspect]
     Active Substance: ENCORAFENIB
     Indication: Neoplasm
     Dosage: UNK
     Dates: start: 2023

REACTIONS (4)
  - Cyanosis [Unknown]
  - Swelling face [Unknown]
  - Skin burning sensation [Unknown]
  - Facial pain [Unknown]
